FAERS Safety Report 10013454 (Version 1)
Quarter: 2014Q1

REPORT INFORMATION
  Report Type: Spontaneous
  Country: US (occurrence: US)
  Receive Date: 20140314
  Receipt Date: 20140314
  Transmission Date: 20141002
  Serious: No
  Sender: FDA-Public Use
  Company Number: US-ASTRAZENECA-2014SE16342

PATIENT
  Age: 80 Year
  Sex: Male

DRUGS (1)
  1. NEXIUM [Suspect]
     Indication: PRODUCT USED FOR UNKNOWN INDICATION
     Route: 048
     Dates: start: 20121116

REACTIONS (2)
  - Malaise [Recovered/Resolved]
  - Intentional drug misuse [Unknown]
